FAERS Safety Report 4735061-3 (Version None)
Quarter: 2005Q3

REPORT INFORMATION
  Report Type: 
  Country: None (occurrence: None)
  Receive Date: 20050804
  Receipt Date: 20050309
  Transmission Date: 20060218
  Serious: Yes (Disabling)
  Sender: FDA-Public Use
  Company Number: US-MERCK-0503USA02006

PATIENT
  Age: 84 Year
  Sex: Male
  Weight: 73 kg

DRUGS (11)
  1. VIOXX [Suspect]
     Indication: ARTHRITIS
     Route: 048
     Dates: start: 20040201, end: 20040701
  2. ULTRACET [Concomitant]
     Indication: PAIN
     Route: 065
  3. ZOLOFT [Concomitant]
     Indication: DEPRESSION
     Route: 065
     Dates: start: 19900101
  4. FOSAMAX [Concomitant]
     Indication: OSTEOARTHRITIS
     Route: 065
  5. FLEXERIL [Concomitant]
     Indication: MUSCLE SPASMS
     Route: 065
  6. PREDNISOLONE [Concomitant]
     Indication: ARTHRITIS
     Route: 065
  7. GLIPIZIDE [Concomitant]
     Indication: DIABETES MELLITUS
     Route: 065
  8. ZOCOR [Concomitant]
     Indication: BLOOD CHOLESTEROL INCREASED
     Route: 065
  9. ZANTAC [Concomitant]
     Indication: ULCER
     Route: 065
  10. HYTRIN [Concomitant]
     Indication: BENIGN PROSTATIC HYPERPLASIA
     Route: 065
  11. ASPIRIN [Concomitant]
     Route: 065
     Dates: start: 19850101

REACTIONS (3)
  - CEREBROVASCULAR ACCIDENT [None]
  - HERNIA [None]
  - POLYTRAUMATISM [None]
